FAERS Safety Report 5310057-1 (Version None)
Quarter: 2007Q2

REPORT INFORMATION
  Report Type: 
  Country: None (occurrence: None)
  Receive Date: 20070427
  Receipt Date: 20070419
  Transmission Date: 20071010
  Serious: Yes (Hospitalization)
  Sender: FDA-Public Use
  Company Number: FR-GLAXOSMITHKLINE-B0466473A

PATIENT
  Age: 64 Year
  Sex: Male

DRUGS (10)
  1. AUGMENTIN '125' [Suspect]
     Indication: CHOLANGITIS
     Route: 042
     Dates: start: 20070302, end: 20070308
  2. CELLCEPT [Concomitant]
  3. NEORAL [Concomitant]
  4. TAHOR [Concomitant]
  5. SOLUPRED [Concomitant]
  6. OMEPRAZOLE [Concomitant]
  7. LASIX [Concomitant]
  8. LEVOCARNIL [Concomitant]
  9. IMOVANE [Concomitant]
  10. OFLOCET [Concomitant]
     Dates: start: 20070302

REACTIONS (1)
  - NEUTROPENIA [None]
